FAERS Safety Report 4368842-9 (Version None)
Quarter: 2004Q2

REPORT INFORMATION
  Report Type: 
  Country: None (occurrence: None)
  Receive Date: 20040601
  Receipt Date: 20040601
  Transmission Date: 20050107
  Serious: Yes (Hospitalization)
  Sender: FDA-Public Use
  Company Number: None

PATIENT
  Sex: Male
  Weight: 41.5 kg

DRUGS (3)
  1. ASPARAGINAS [Suspect]
     Indication: ACUTE LYMPHOCYTIC LEUKAEMIA
     Dosage: 16500 UNITS IM OTO
     Dates: start: 20040112
  2. METHOTREXATE [Concomitant]
  3. ARA-C [Concomitant]

REACTIONS (1)
  - PANCREATITIS [None]
